FAERS Safety Report 5459999-7 (Version None)
Quarter: 2007Q3

REPORT INFORMATION
  Report Type: 
  Country: None (occurrence: None)
  Receive Date: 20070919
  Receipt Date: 20070502
  Transmission Date: 20080115
  Serious: Yes (Other)
  Sender: FDA-Public Use
  Company Number: US-ASTRAZENECA-2007UW09592

PATIENT
  Age: 32 Year
  Sex: Male

DRUGS (3)
  1. SEROQUEL [Suspect]
     Indication: BIPOLAR DISORDER
     Route: 048
     Dates: start: 20021201, end: 20030601
  2. RISPERDAL [Suspect]
     Indication: BIPOLAR DISORDER
     Dates: start: 19980101, end: 19980101
  3. ZYPREXA [Suspect]
     Indication: BIPOLAR DISORDER
     Dates: start: 20010101, end: 20021104

REACTIONS (2)
  - DIABETES MELLITUS [None]
  - DIABETIC KETOACIDOSIS [None]
